FAERS Safety Report 22141280 (Version 1)
Quarter: 2023Q1

REPORT INFORMATION
  Report Type: Spontaneous
  Country: US (occurrence: None)
  Receive Date: 20230325
  Receipt Date: 20230325
  Transmission Date: 20230417
  Serious: Yes (Life-Threatening, Hospitalization)
  Sender: FDA-Public Use
  Company Number: None

PATIENT
  Age: 40 Year
  Sex: Female
  Weight: 76.5 kg

DRUGS (1)
  1. DULCOLAX NOS [Suspect]
     Active Substance: BISACODYL OR DOCUSATE SODIUM
     Indication: Constipation
     Dosage: OTHER QUANTITY : 30 ML;?OTHER FREQUENCY : SINGLE DOSE OR DIV;?
     Route: 048
     Dates: start: 20230321, end: 20230322

REACTIONS (5)
  - Urticaria [None]
  - Dyspnoea [None]
  - Lip swelling [None]
  - Eye swelling [None]
  - Drug hypersensitivity [None]

NARRATIVE: CASE EVENT DATE: 20230321
